FAERS Safety Report 5281085-X (Version None)
Quarter: 2007Q1

REPORT INFORMATION
  Report Type: 
  Country: None (occurrence: None)
  Receive Date: 20070323
  Receipt Date: 20070312
  Transmission Date: 20070707
  Serious: Yes (Other)
  Sender: FDA-Public Use
  Company Number: 100#03#2007-00855

PATIENT
  Age: 62 Year
  Sex: Female

DRUGS (8)
  1. ONDANSETRON [Suspect]
     Indication: DRUG USE FOR UNKNOWN INDICATION
  2. DEXAMETHASONE [Suspect]
     Indication: DRUG USE FOR UNKNOWN INDICATION
  3. FENTANYL [Suspect]
     Indication: DRUG USE FOR UNKNOWN INDICATION
  4. PROPOFOL [Suspect]
     Indication: DRUG USE FOR UNKNOWN INDICATION
  5. SUXAMETHONIUM (SUXAMETHONIUM) (SUXAMETHONIUM) [Suspect]
     Indication: MUSCLE RELAXANT THERAPY
     Dosage: 100 MG INTRAVENOUS (NOT OTHERWISE SPECIFIED)
     Route: 042
  6. FUROSEMIDE (FUROSEMIDE) (FUROSEMIDE) [Concomitant]
  7. SIMVASTATIN (SIMVASTATIN) (SIMVASTATIN) [Concomitant]
  8. VENTOLIN (SALBUTAMOL) (SALBUTAMOL) [Concomitant]

REACTIONS (2)
  - ANAESTHETIC COMPLICATION [None]
  - CARDIAC ARREST [None]
